FAERS Safety Report 23978926 (Version 1)
Quarter: 2024Q2

REPORT INFORMATION
  Report Type: Spontaneous
  Country: GB (occurrence: GB)
  Receive Date: 20240615
  Receipt Date: 20240615
  Transmission Date: 20240716
  Serious: Yes (Other)
  Sender: FDA-Public Use
  Company Number: GB-MHRA-TPP17705078C4801182YC1717590312499

PATIENT
  Age: 68 Year
  Sex: Female
  Weight: 92 kg

DRUGS (14)
  1. PREDNISOLONE [Suspect]
     Active Substance: PREDNISOLONE
     Indication: Sinusitis
     Route: 048
     Dates: start: 20231012, end: 20231025
  2. DESLORATADINE [Concomitant]
     Active Substance: DESLORATADINE
     Indication: Ill-defined disorder
     Dosage: TPP YC - PLEASE RECLASSIFY
     Route: 065
     Dates: start: 20220810
  3. AZELASTINE [Concomitant]
     Active Substance: AZELASTINE\AZELASTINE HYDROCHLORIDE
     Indication: Ill-defined disorder
     Dosage: INSTILL ONE SPRAY INTO EACH NOSTRIL TWICE A DAY, TPP YC - PLEASE RECLASSIFY
     Route: 045
     Dates: start: 20240418, end: 20240516
  4. HYDROXYCHLOROQUINE SULFATE [Concomitant]
     Active Substance: HYDROXYCHLOROQUINE SULFATE
     Indication: Ill-defined disorder
     Dosage: TPP YC - PLEASE RECLASSIFY
     Route: 065
     Dates: start: 20240327
  5. IPRATROPIUM BROMIDE [Concomitant]
     Active Substance: IPRATROPIUM BROMIDE\IPRATROPIUM BROMIDE ANHYDROUS
     Indication: Ill-defined disorder
     Dosage: 2 PUFFS EACH NOSTRIL AM NOON + PM FOR 1 MONTH, TPP YC - PLEASE RECLASSIFY
     Route: 045
     Dates: start: 20240510
  6. DOXYCYCLINE [Concomitant]
     Active Substance: DOXYCYCLINE\DOXYCYCLINE HYCLATE
     Indication: Ill-defined disorder
     Dosage: TAKE TWO NOW THEN ONE DAILY (5 DAYS TOTAL), TPP YC - PLEASE RECLASSIFY
     Route: 065
     Dates: start: 20240501, end: 20240501
  7. NASONEX [Concomitant]
     Active Substance: MOMETASONE FUROATE
     Indication: Ill-defined disorder
     Dosage: TPP YC - PLEASE RECLASSIFY
     Route: 065
     Dates: start: 20220810
  8. CALCIUM CARBONATE [Concomitant]
     Active Substance: CALCIUM CARBONATE
     Indication: Ill-defined disorder
     Dosage: TPP YC - PLEASE RECLASSIFY
     Route: 065
     Dates: start: 20230227
  9. LANSOPRAZOLE [Concomitant]
     Active Substance: LANSOPRAZOLE
     Indication: Ill-defined disorder
     Route: 065
     Dates: start: 20240111
  10. AMOXICILLIN [Concomitant]
     Active Substance: AMOXICILLIN
     Indication: Ill-defined disorder
     Route: 065
     Dates: start: 20240520, end: 20240527
  11. FLUTICASONE PROPIONATE [Concomitant]
     Active Substance: FLUTICASONE PROPIONATE
     Indication: Ill-defined disorder
     Dosage: TWO SPRAYS TWICE PER DAY AND REDUCE TO ONE SPRA..., TPP YC - PLEASE RECLASSIFY
     Route: 065
     Dates: start: 20240520
  12. PENICILLIN V [Concomitant]
     Active Substance: PENICILLIN V
     Indication: Ill-defined disorder
     Dosage: 2X5ML SPOON 4 TIMES/ TO TREAT SINUSITIS, TPP YC - PLEASE RECLASSIFY
     Route: 065
     Dates: start: 20240326, end: 20240402
  13. QUETIAPINE [Concomitant]
     Active Substance: QUETIAPINE
     Indication: Ill-defined disorder
     Dosage: AT NIGHT UNTIL REVI..., TPP YC - PLEASE RECLASSIFY
     Route: 065
     Dates: start: 20240212, end: 20240510
  14. HYDROXYZINE [Concomitant]
     Active Substance: HYDROXYZINE HYDROCHLORIDE
     Indication: Ill-defined disorder
     Dosage: TAKE 1 8PM NOLATER, TPP YC - PLEASE RECLASSIFY
     Route: 065
     Dates: start: 20240510

REACTIONS (1)
  - Psychotic disorder [Recovered/Resolved]

NARRATIVE: CASE EVENT DATE: 20231110
